FAERS Safety Report 17099428 (Version 3)
Quarter: 2020Q1

REPORT INFORMATION
  Report Type: Report from Study
  Country: CA (occurrence: CA)
  Receive Date: 20191202
  Receipt Date: 20200121
  Transmission Date: 20200409
  Serious: Yes (Death, Hospitalization, Other)
  Sender: FDA-Public Use
  Company Number: CA-GLAXOSMITHKLINE-CA2019AMR216758

PATIENT
  Sex: Female

DRUGS (1)
  1. MEPOLIZUMAB [Suspect]
     Active Substance: MEPOLIZUMAB
     Indication: ASTHMA
     Dosage: 100 MG, Z, MONTHLY
     Route: 042
     Dates: start: 20191008

REACTIONS (7)
  - Cardiac infection [Fatal]
  - Oesophageal dilatation [Fatal]
  - Vomiting [Fatal]
  - Cerebrovascular accident [Fatal]
  - Cardiac valve disease [Fatal]
  - Sepsis [Fatal]
  - Endocarditis [Fatal]
